FAERS Safety Report 7722644-1 (Version None)
Quarter: 2011Q3

REPORT INFORMATION
  Report Type: 
  Country: None (occurrence: None)
  Receive Date: 20110831
  Receipt Date: 20110822
  Transmission Date: 20111222
  Serious: Yes (Hospitalization)
  Sender: FDA-Public Use
  Company Number: US-ASTRAZENECA-2011SE47909

PATIENT
  Age: 20399 Day
  Sex: Female

DRUGS (19)
  1. SEROQUEL [Suspect]
     Route: 048
     Dates: start: 20100101
  2. PLACEBO [Suspect]
  3. NORCO [Suspect]
  4. ALBUTEROL SULFATE AUTOHALER [Concomitant]
     Dates: start: 20070101
  5. XANAX [Concomitant]
     Dates: start: 20030101
  6. BMS791325 [Suspect]
     Indication: HEPATITIS C
     Dates: start: 20101028, end: 20110602
  7. PLACEBO [Suspect]
     Indication: HEPATITIS C
     Dates: start: 20101028, end: 20110602
  8. OXYCONTIN [Concomitant]
     Dates: start: 20080101
  9. ZANTAC [Concomitant]
     Dates: start: 20101114
  10. PEGASYS [Suspect]
     Indication: HEPATITIS C
     Dates: start: 20101028, end: 20110601
  11. RIBAVIRIN [Suspect]
     Indication: HEPATITIS C
     Dates: start: 20101028, end: 20110602
  12. CYMBALTA [Suspect]
     Dates: start: 20090101
  13. PHENERGAN HCL [Concomitant]
     Dates: start: 20101222
  14. CALCIUM CARBONATE [Concomitant]
  15. MORPHINE SULFATE [Suspect]
  16. AMBIEN [Concomitant]
     Dates: start: 20080101
  17. DEPAKOTE [Concomitant]
     Dates: start: 20100101
  18. NEUPOGEN [Concomitant]
     Dates: start: 20101124
  19. MUCINEX [Concomitant]
     Dates: start: 20101117

REACTIONS (1)
  - SEROTONIN SYNDROME [None]
